FAERS Safety Report 13755338 (Version 6)
Quarter: 2018Q3

REPORT INFORMATION
  Report Type: Spontaneous
  Country: US (occurrence: US)
  Receive Date: 20170714
  Receipt Date: 20180806
  Transmission Date: 20181010
  Serious: No
  Sender: FDA-Public Use
  Company Number: US-PFIZER INC-2017265818

PATIENT
  Age: 58 Year
  Sex: Male

DRUGS (1)
  1. SUTENT [Suspect]
     Active Substance: SUNITINIB MALATE
     Indication: HEPATIC CANCER METASTATIC
     Dosage: 25 MG, DAILY[25 MG TOTAL]
     Route: 048
     Dates: start: 201707, end: 2017

REACTIONS (9)
  - Product use in unapproved indication [Unknown]
  - Vomiting [Unknown]
  - Asthenia [Unknown]
  - Diarrhoea [Unknown]
  - Amnesia [Unknown]
  - Nausea [Unknown]
  - Drug dose omission [Unknown]
  - Fatigue [Unknown]
  - Discoloured vomit [Unknown]

NARRATIVE: CASE EVENT DATE: 2017
